FAERS Safety Report 9179973 (Version 1)
Quarter: 2012Q4

REPORT INFORMATION
  Report Type: 
  Country: US (occurrence: US)
  Receive Date: 20121029
  Receipt Date: 20121029
  Transmission Date: 20130627
  Serious: No
  Sender: FDA-Public Use
  Company Number: US-AMGEN-USASP2012054304

PATIENT
  Age: 14 Year
  Sex: Male

DRUGS (2)
  1. ENBREL [Suspect]
     Indication: JUVENILE ARTHRITIS
     Dosage: 50 mg, qwk
     Route: 058
     Dates: start: 20120621
  2. PREDNISONE [Concomitant]
     Dosage: 10 mg, UNK

REACTIONS (4)
  - Joint swelling [Unknown]
  - Joint stiffness [Unknown]
  - Arthralgia [Unknown]
  - Injection site erythema [Unknown]
